FAERS Safety Report 5312809-0 (Version None)
Quarter: 2007Q2

REPORT INFORMATION
  Report Type: 
  Country: None (occurrence: None)
  Receive Date: 20070424
  Receipt Date: 20070413
  Transmission Date: 20071010
  Serious: Yes (Hospitalization)
  Sender: FDA-Public Use
  Company Number: TPA2007A00773

PATIENT
  Sex: Male

DRUGS (3)
  1. ROZEREM [Suspect]
     Dosage: PER ORAL
     Route: 048
  2. CLONAZEPAM [Suspect]
     Indication: ANXIETY
     Dosage: 0.25 MG, PER ORAL
     Route: 048
  3. TRAZODONE HCL [Concomitant]

REACTIONS (2)
  - ANXIETY [None]
  - CARDIAC DISORDER [None]
